FAERS Safety Report 9503999 (Version 1)
Quarter: 2013Q3

REPORT INFORMATION
  Report Type: Spontaneous
  Country: US (occurrence: None)
  Receive Date: 20130905
  Receipt Date: 20130905
  Transmission Date: 20140515
  Serious: No
  Sender: FDA-Public Use
  Company Number: None

PATIENT
  Age: 31 Year
  Sex: Female

DRUGS (1)
  1. VYVANSE [Suspect]
     Indication: ATTENTION DEFICIT/HYPERACTIVITY DISORDER
     Route: 048
     Dates: start: 20070501, end: 20101101

REACTIONS (10)
  - Dizziness [None]
  - Activities of daily living impaired [None]
  - Visual impairment [None]
  - Eye disorder [None]
  - Trismus [None]
  - Temporomandibular joint syndrome [None]
  - Amnesia [None]
  - Vomiting [None]
  - Confusional state [None]
  - Cognitive disorder [None]
